FAERS Safety Report 5269498-3 (Version None)
Quarter: 2007Q1

REPORT INFORMATION
  Report Type: 
  Country: None (occurrence: None)
  Receive Date: 20070314
  Receipt Date: 20070228
  Transmission Date: 20070707
  Serious: Yes (Other)
  Sender: FDA-Public Use
  Company Number: 200504IM000131

PATIENT
  Age: 73 Year
  Sex: Male
  Weight: 91.4 kg

DRUGS (3)
  1. INTERFERON GAMMA-1B [Suspect]
     Indication: IDIOPATHIC PULMONARY FIBROSIS
     Dosage: 200 UG, TIW, SUBCUTANEOUS
     Route: 058
     Dates: start: 20040618
  2. APRANAX [Concomitant]
  3. MEDROL [Concomitant]

REACTIONS (1)
  - PROSTATE CANCER [None]
